FAERS Safety Report 24610702 (Version 1)
Quarter: 2024Q4

REPORT INFORMATION
  Report Type: Spontaneous
  Country: US (occurrence: US)
  Receive Date: 20241112
  Receipt Date: 20241112
  Transmission Date: 20250115
  Serious: No
  Sender: INCYTE
  Company Number: US-EVENT-000312

PATIENT

DRUGS (1)
  1. OPZELURA [Suspect]
     Active Substance: RUXOLITINIB PHOSPHATE
     Dosage: UNK, BID (AS NEEDED)
     Route: 065

REACTIONS (1)
  - Application site irritation [Unknown]
